FAERS Safety Report 16237548 (Version 1)
Quarter: 2019Q2

REPORT INFORMATION
  Report Type: Spontaneous
  Country: US (occurrence: US)
  Receive Date: 20190425
  Receipt Date: 20190425
  Transmission Date: 20190711
  Serious: No
  Sender: FDA-Public Use
  Company Number: US-TEVA-2019-US-1043437

PATIENT
  Sex: Female

DRUGS (3)
  1. BACLOFEN. [Concomitant]
     Active Substance: BACLOFEN
     Indication: OCCIPITAL NEURALGIA
     Dosage: 80 MILLIGRAM DAILY; IN ADDITION TO THE 20/MGS AT BEDTIME
     Route: 065
  2. AUSTEDO [Suspect]
     Active Substance: DEUTETRABENAZINE
  3. ARTANE [Concomitant]
     Active Substance: TRIHEXYPHENIDYL HYDROCHLORIDE
     Dosage: 6 MILLIGRAM DAILY;
     Route: 065

REACTIONS (2)
  - Occipital neuralgia [Unknown]
  - Adverse event [Unknown]
